FAERS Safety Report 19510783 (Version 14)
Quarter: 2022Q4

REPORT INFORMATION
  Report Type: Spontaneous
  Country: GB (occurrence: GB)
  Receive Date: 20210709
  Receipt Date: 20221110
  Transmission Date: 20230113
  Serious: Yes (Death, Life-Threatening, Hospitalization, Disabling, Other)
  Sender: FDA-Public Use
  Company Number: None

PATIENT
  Age: 76 Year
  Sex: Male
  Weight: 69 kg

DRUGS (95)
  1. CEFUROXIME AXETIL [Suspect]
     Active Substance: CEFUROXIME AXETIL
     Indication: Product used for unknown indication
     Dosage: UNK
     Route: 065
     Dates: start: 20180131
  2. CHOLECALCIFEROL [Suspect]
     Active Substance: CHOLECALCIFEROL
     Indication: Product used for unknown indication
     Dosage: 50 NANOGRAM, QD (O/A)
     Route: 048
  3. CHOLECALCIFEROL [Suspect]
     Active Substance: CHOLECALCIFEROL
     Dosage: 20 NANOGRAM, QD, 20 NANOGRAM DAILY; CALCIUM CARBONATE + COLECALCIFEROL 20NG DAILY
     Route: 048
  4. CHOLECALCIFEROL [Suspect]
     Active Substance: CHOLECALCIFEROL
     Dosage: 20 NANOGRAM, UNK
     Route: 065
  5. HYDROCORTISONE [Suspect]
     Active Substance: HYDROCORTISONE
     Indication: Product used for unknown indication
     Dosage: HYDRORTISIONE 50 MG THREE TIMES A DAY
     Route: 042
     Dates: start: 20180201
  6. HYDROCORTISONE [Suspect]
     Active Substance: HYDROCORTISONE
     Dosage: 450 MILLIGRAM, TID
     Route: 042
     Dates: start: 20180201
  7. HYDROCORTISONE [Suspect]
     Active Substance: HYDROCORTISONE
     Dosage: 150 MILLIGRAM, QD
     Route: 065
     Dates: start: 20180201
  8. HYDROCORTISONE [Suspect]
     Active Substance: HYDROCORTISONE
     Dosage: 450 MILLIGRAM, QD
     Route: 042
     Dates: start: 20180201
  9. HYDROCORTISONE [Suspect]
     Active Substance: HYDROCORTISONE
     Dosage: 500 NANOGRAM, QD
     Route: 048
  10. HYDROCORTISONE [Suspect]
     Active Substance: HYDROCORTISONE
     Dosage: 150 MILLIGRAM, DAILY
     Route: 042
  11. OMEPRAZOLE [Suspect]
     Active Substance: OMEPRAZOLE
     Indication: Duodenal ulcer
     Dosage: OMEPRAZOLE CHEMO IBERICA 20 MG DAILY (20MILLIGRAM , QD, MORNING) (): GASTRO-RESISTANT CAPSULE )
     Route: 048
  12. OMEPRAZOLE [Suspect]
     Active Substance: OMEPRAZOLE
     Dosage: 5 MILLIGRAM, QD(IN THE MORNING)
     Route: 048
  13. OMEPRAZOLE [Suspect]
     Active Substance: OMEPRAZOLE
     Dosage: 20 MILLIGRAM, QD, GASTRO-RESISTANT CAPSULE, HARD
     Route: 048
  14. OMEPRAZOLE [Suspect]
     Active Substance: OMEPRAZOLE
     Dosage: 20 MILLIGRAM, PRN (MONTHLY)
     Route: 048
  15. OMEPRAZOLE [Suspect]
     Active Substance: OMEPRAZOLE
     Dosage: 20 MILLIGRAM, (1 MONTH) GASTRO-RESISTANT CAPSULE, HARD
     Route: 048
  16. TACROLIMUS [Suspect]
     Active Substance: TACROLIMUS
     Indication: Renal transplant
     Dosage: 3 MILLIGRAM, QD (1.5 MILLIGRAM, BID)
     Route: 048
     Dates: start: 20100127, end: 20180130
  17. TACROLIMUS [Suspect]
     Active Substance: TACROLIMUS
     Indication: Prophylaxis against transplant rejection
     Dosage: 3 MILLIGRAM, OD (1.5 MILLIGRAM, BID)
     Route: 048
     Dates: start: 20100127, end: 20180130
  18. TACROLIMUS [Suspect]
     Active Substance: TACROLIMUS
     Dosage: 3 MILLIGRAM, QD (CAPSULE) (1.5 MG, BID)
     Route: 065
     Dates: start: 20100127, end: 20180131
  19. TACROLIMUS [Suspect]
     Active Substance: TACROLIMUS
     Dosage: 3 MILLIGRAM, QD
     Route: 065
     Dates: start: 20100128, end: 20180130
  20. TACROLIMUS [Suspect]
     Active Substance: TACROLIMUS
     Dosage: 15 MILLIGRAM, BID
     Route: 048
     Dates: start: 20180127, end: 20180130
  21. TACROLIMUS [Suspect]
     Active Substance: TACROLIMUS
     Dosage: 1.5 MILLIGRAM, BID
     Route: 065
     Dates: start: 20180127, end: 20180131
  22. TACROLIMUS [Suspect]
     Active Substance: TACROLIMUS
     Dosage: 1.5 MILLIGRAM, QD
     Route: 048
     Dates: start: 20180127
  23. TACROLIMUS [Suspect]
     Active Substance: TACROLIMUS
     Dosage: 30 MILLIGRAM, QD
     Route: 048
     Dates: start: 20180127
  24. TACROLIMUS [Suspect]
     Active Substance: TACROLIMUS
     Dosage: 3 MILLIGRAM, QD
     Dates: start: 20180127, end: 20180131
  25. TACROLIMUS [Suspect]
     Active Substance: TACROLIMUS
     Dosage: 2 MILLIGRAM, BID
     Route: 048
     Dates: start: 20180128
  26. TACROLIMUS [Suspect]
     Active Substance: TACROLIMUS
     Dosage: 3 MILLIGRAM, QD
     Route: 065
     Dates: start: 20180128
  27. TACROLIMUS [Suspect]
     Active Substance: TACROLIMUS
     Dosage: 4 MILLIGRAM, QD
     Route: 065
     Dates: start: 20180128
  28. TACROLIMUS [Suspect]
     Active Substance: TACROLIMUS
     Dosage: 4 MILLIGRAM, QD
     Route: 048
     Dates: start: 20180128, end: 20180130
  29. TACROLIMUS [Suspect]
     Active Substance: TACROLIMUS
     Dosage: 27 MILLIGRAM
     Route: 065
  30. TACROLIMUS [Suspect]
     Active Substance: TACROLIMUS
     Dosage: 15 MILLIGRAM, BID
     Route: 065
  31. TACROLIMUS [Suspect]
     Active Substance: TACROLIMUS
     Dosage: 12 MILLIGRAM, UNK
     Route: 065
  32. TACROLIMUS [Suspect]
     Active Substance: TACROLIMUS
     Dosage: 30 MILLIGRAM, QD
     Route: 065
  33. TACROLIMUS [Suspect]
     Active Substance: TACROLIMUS
     Dosage: UNK
     Route: 065
  34. DOXYCYCLINE [Suspect]
     Active Substance: DOXYCYCLINE
     Indication: Product used for unknown indication
     Dosage: UNK
     Route: 065
  35. DOXYCYCLINE [Suspect]
     Active Substance: DOXYCYCLINE
     Dosage: UNK
     Route: 065
  36. ENVARSUS XR [Suspect]
     Active Substance: TACROLIMUS
     Indication: Renal transplant
     Dosage: 1.5 MILLIGRAM, BID (3MG QD)
     Route: 065
     Dates: start: 20180127, end: 20180131
  37. ENVARSUS XR [Suspect]
     Active Substance: TACROLIMUS
     Indication: Prophylaxis against transplant rejection
     Dosage: 27 MILLIGRAM, BID (, PROPHYLAXIS AGAINST TRANSPLANT REJECTION, QD TABLETS) (UNCOATED)
     Route: 048
  38. ENVARSUS XR [Suspect]
     Active Substance: TACROLIMUS
     Dosage: UNK
     Route: 065
  39. ENVARSUS XR [Suspect]
     Active Substance: TACROLIMUS
     Dosage: UNK, PRN (UNCOATED)
     Route: 048
  40. BISOPROLOL [Suspect]
     Active Substance: BISOPROLOL
     Indication: Product used for unknown indication
     Dosage: 150 MILLIGRAM, TID
     Route: 065
     Dates: start: 20180131
  41. BISOPROLOL [Suspect]
     Active Substance: BISOPROLOL
     Dosage: UNK
     Route: 065
  42. OMEPRAZOLE [Suspect]
     Active Substance: OMEPRAZOLE
     Indication: Duodenal ulcer
     Dosage: 20 MILLIGRAM, QD
     Route: 048
  43. CLARITHROMYCIN [Suspect]
     Active Substance: CLARITHROMYCIN
     Indication: Pneumonia
     Dosage: 500 MILLIGRAM, QOD
     Route: 042
     Dates: start: 20180127, end: 20180131
  44. CLARITHROMYCIN [Suspect]
     Active Substance: CLARITHROMYCIN
     Indication: Lower respiratory tract infection
     Dosage: 250 MILLIGRAM, QD, 500 MILLIGRAM, QOD
     Route: 042
  45. CLARITHROMYCIN [Suspect]
     Active Substance: CLARITHROMYCIN
     Indication: Mediastinitis
     Dosage: UNK (INJECTION)
     Route: 042
  46. CLARITHROMYCIN [Suspect]
     Active Substance: CLARITHROMYCIN
     Dosage: 500 MILLIGRAM, BID
     Route: 042
     Dates: start: 20180127, end: 20180130
  47. CLARITHROMYCIN [Suspect]
     Active Substance: CLARITHROMYCIN
     Dosage: 500 MILLIGRAM, BID
     Route: 042
  48. CLARITHROMYCIN [Suspect]
     Active Substance: CLARITHROMYCIN
     Dosage: 900 MILLIGRAM, BID
     Route: 065
  49. CLARITHROMYCIN [Suspect]
     Active Substance: CLARITHROMYCIN
     Dosage: UNK, 900 MILLIGRAM, QD
     Route: 065
  50. CLARITHROMYCIN [Suspect]
     Active Substance: CLARITHROMYCIN
     Dosage: UNK, 1000 MILLIGRAM, QD
     Route: 065
  51. DEXTROSE [Suspect]
     Active Substance: DEXTROSE
     Indication: Product used for unknown indication
     Dosage: UNK
     Route: 065
  52. DEXTROSE [Suspect]
     Active Substance: DEXTROSE
     Dosage: UNK, PRN
     Route: 065
     Dates: start: 20180130
  53. DEXTROSE [Suspect]
     Active Substance: DEXTROSE
     Dosage: UNK, PRN
     Route: 065
     Dates: start: 20180130
  54. NITROGLYCERIN [Suspect]
     Active Substance: NITROGLYCERIN
     Indication: Product used for unknown indication
     Dosage: 50 MILLIGRAM, TID
     Route: 065
     Dates: start: 20180201
  55. NITROGLYCERIN [Suspect]
     Active Substance: NITROGLYCERIN
     Dosage: UNK, PRN
     Route: 065
  56. NITROGLYCERIN [Suspect]
     Active Substance: NITROGLYCERIN
     Dosage: UNK, PRN ( GTN SPRAY)
     Route: 065
  57. NITROGLYCERIN [Suspect]
     Active Substance: NITROGLYCERIN
     Indication: Product used for unknown indication
     Dosage: 500 NANOGRAM, QD
     Route: 065
  58. NITROGLYCERIN [Suspect]
     Active Substance: NITROGLYCERIN
     Dosage: UNK
     Route: 065
  59. SENNOSIDES A AND B [Suspect]
     Active Substance: SENNOSIDES A AND B
     Indication: Product used for unknown indication
     Dosage: UNK, PRN
     Route: 065
     Dates: start: 20180130
  60. SENNOSIDES A AND B [Suspect]
     Active Substance: SENNOSIDES A AND B
     Dosage: UNK
     Route: 065
  61. ALFACALCIDOL [Concomitant]
     Active Substance: ALFACALCIDOL
     Indication: Product used for unknown indication
     Dosage: 500 NANOGRAM, QD
     Route: 048
  62. ALFACALCIDOL [Concomitant]
     Active Substance: ALFACALCIDOL
     Dosage: 8 MILLIGRAM MONTHLY
     Route: 048
  63. ALLOPURINOL [Concomitant]
     Active Substance: ALLOPURINOL
     Indication: Product used for unknown indication
     Dosage: ALLOPURINOL 100MG OD PO O/A
     Route: 048
  64. BETAHISTINE [Concomitant]
     Active Substance: BETAHISTINE
     Indication: Product used for unknown indication
     Dosage: BETAHISTINE 8MG OM PO
     Route: 048
  65. BETAHISTINE [Concomitant]
     Active Substance: BETAHISTINE
     Dosage: 20 NANOGRAM MONTHLY
     Route: 048
  66. BETAHISTINE [Concomitant]
     Active Substance: BETAHISTINE
     Dosage: 8 MILLI-INTERNATIONAL UNIT, QD ( , EVERY MORNING)
     Route: 065
  67. BETAHISTINE [Concomitant]
     Active Substance: BETAHISTINE
     Dosage: 8 MILLIGRAM, UNK
     Route: 065
  68. CHOLECALCIFEROL [Concomitant]
     Active Substance: CHOLECALCIFEROL
     Indication: Product used for unknown indication
     Dosage: CALCIUM CARBONATE + COLECALCIFEROL 20NG DAILY (MONTHLY MORNING)
     Route: 048
  69. CHOLECALCIFEROL [Concomitant]
     Active Substance: CHOLECALCIFEROL
     Dosage: 20 NANOGRAM (MONTHLY)
  70. DEXTROSE [Concomitant]
     Active Substance: DEXTROSE
     Indication: Product used for unknown indication
     Dosage: 100 MILLIGRAM, QD
     Route: 065
     Dates: start: 20180130
  71. DEXTROSE [Concomitant]
     Active Substance: DEXTROSE
     Dosage: 1 DOSAGE FORM
     Route: 065
  72. DEXTROSE [Concomitant]
     Active Substance: DEXTROSE
     Dosage: UNK
     Route: 065
     Dates: start: 20180130
  73. EPLERENONE [Concomitant]
     Active Substance: EPLERENONE
     Indication: Product used for unknown indication
     Dosage: EPLERENONE 25MG OM PO O/A (MONTHLY)
     Route: 048
     Dates: start: 20180130, end: 20180130
  74. EPLERENONE [Concomitant]
     Active Substance: EPLERENONE
     Dosage: 25 MILLIGRAM
     Route: 065
     Dates: start: 20180130
  75. FUROSEMIDE [Concomitant]
     Active Substance: FUROSEMIDE
     Indication: Product used for unknown indication
     Dosage: FUROSEMIDE 80MG OM PO O/A
     Route: 048
     Dates: start: 20180130
  76. FUROSEMIDE [Concomitant]
     Active Substance: FUROSEMIDE
     Dosage: 40 MILLIGRAM, QD (UNK 12 PM)
     Route: 065
  77. FUROSEMIDE [Concomitant]
     Active Substance: FUROSEMIDE
     Dosage: 120 MILLIGRAM(80MG MORNING, 40MG 12PM)
     Route: 065
     Dates: start: 20180130
  78. FUROSEMIDE [Concomitant]
     Active Substance: FUROSEMIDE
     Dosage: 80 MILLIGRAM, FUROSEMIDE 80MG OM PO O/A
     Route: 048
     Dates: start: 20180130
  79. GLICLAZIDE [Concomitant]
     Active Substance: GLICLAZIDE
     Indication: Product used for unknown indication
     Dosage: GLICLAZIDE 40MG OM PO O/A, MONTHLY
     Route: 048
  80. GLICLAZIDE [Concomitant]
     Active Substance: GLICLAZIDE
     Dosage: 40 MILLIGRAM PER GRAM, QD, MORNING
     Route: 065
  81. GLICLAZIDE [Concomitant]
     Active Substance: GLICLAZIDE
     Dosage: 40 MILLIGRAM, UNK
     Route: 048
  82. GLUCAGON [Concomitant]
     Active Substance: GLUCAGON
     Indication: Product used for unknown indication
     Dosage: UNK
     Route: 030
     Dates: start: 20180130
  83. NITROGLYCERIN [Concomitant]
     Active Substance: NITROGLYCERIN
     Indication: Product used for unknown indication
     Dosage: UNK
     Route: 065
  84. NITROGLYCERIN [Concomitant]
     Active Substance: NITROGLYCERIN
     Dosage: UNK, GTN SPRAY
     Route: 065
  85. PREDNISOLONE [Concomitant]
     Active Substance: PREDNISOLONE
     Indication: Product used for unknown indication
     Dosage: INCREASE PREDNISOLONE TO 10 MG FOR 5 DAYS;
     Route: 065
     Dates: start: 20180127
  86. PREDNISOLONE [Concomitant]
     Active Substance: PREDNISOLONE
     Dosage: 5 MILLIGRAM, QMO (INCREASE PREDNISOLONE TO 10 MG FOR 5 DAYS)
     Route: 048
     Dates: start: 20180127, end: 20180127
  87. PREDNISOLONE [Concomitant]
     Active Substance: PREDNISOLONE
     Dosage: 5 MILLIGRAM, PRN (MONTHLY)
     Dates: start: 20180127
  88. PREDNISOLONE [Concomitant]
     Active Substance: PREDNISOLONE
     Dosage: 10 MILLIGRAM, UNK,  (INCREASE PREDNISOLONE TO 10 MG FOR 5 DAYS)
     Dates: start: 20180127
  89. PREDNISOLONE [Concomitant]
     Active Substance: PREDNISOLONE
     Dosage: 5 MILLIGRAM, PRN
     Route: 048
     Dates: start: 20180127
  90. PREDNISOLONE [Concomitant]
     Active Substance: PREDNISOLONE
     Dosage: 1 UNK, AM
     Route: 048
  91. ALBUTEROL [Concomitant]
     Active Substance: ALBUTEROL
     Indication: Product used for unknown indication
     Dosage: UNK, PRN
     Route: 065
     Dates: start: 20180130
  92. ALBUTEROL [Concomitant]
     Active Substance: ALBUTEROL
     Dosage: UNK,
     Route: 065
  93. SENNA [Concomitant]
     Active Substance: SENNA LEAF\SENNOSIDES\SENNOSIDES A AND B
     Indication: Product used for unknown indication
     Dosage: SENNA 15MG ON PO O/A
     Route: 048
     Dates: start: 20180130
  94. GLUCOGEL [Concomitant]
     Indication: Product used for unknown indication
     Dosage: UNK
     Route: 065
  95. CALCIUM CARBONATE [Concomitant]
     Active Substance: CALCIUM CARBONATE
     Indication: Product used for unknown indication
     Dosage: UNK
     Route: 048

REACTIONS (34)
  - Acute kidney injury [Fatal]
  - Myocardial ischaemia [Fatal]
  - Oesophageal carcinoma [Fatal]
  - Sepsis [Fatal]
  - Cardiac failure congestive [Fatal]
  - Immunosuppressant drug level increased [Fatal]
  - Toxicity to various agents [Fatal]
  - Drug level increased [Fatal]
  - Pneumonia [Fatal]
  - Multimorbidity [Fatal]
  - Oesophageal perforation [Fatal]
  - Labelled drug-drug interaction medication error [Fatal]
  - Swelling [Fatal]
  - Dyspnoea [Fatal]
  - Transplant failure [Fatal]
  - Haemoptysis [Fatal]
  - Soft tissue mass [Fatal]
  - Cardiomegaly [Fatal]
  - Lung consolidation [Fatal]
  - Rales [Fatal]
  - Pyrexia [Fatal]
  - Hypoglycaemia [Fatal]
  - Lower respiratory tract infection [Fatal]
  - Productive cough [Fatal]
  - Dysphagia [Fatal]
  - Superinfection [Fatal]
  - Rash [Fatal]
  - Ascites [Fatal]
  - Pleural effusion [Fatal]
  - Inflammatory marker increased [Fatal]
  - Malaise [Fatal]
  - Drug interaction [Fatal]
  - Renal impairment [Fatal]
  - Cough [Fatal]

NARRATIVE: CASE EVENT DATE: 20180118
